FAERS Safety Report 22194396 (Version 1)
Quarter: 2023Q2

REPORT INFORMATION
  Report Type: Spontaneous
  Country: US (occurrence: US)
  Receive Date: 20230411
  Receipt Date: 20230411
  Transmission Date: 20230721
  Serious: No
  Sender: FDA-Public Use
  Company Number: US-LEO Pharma-351076

PATIENT
  Sex: Female

DRUGS (2)
  1. ADBRY [Suspect]
     Active Substance: TRALOKINUMAB-LDRM
     Indication: Eczema
     Dosage: DOSAGE: RECEIVED INITIAL DOSE THEN 1 MAINTENANCE DOSE, SOMETIMES IN THE LAST TWO MONTHS
  2. ADBRY [Suspect]
     Active Substance: TRALOKINUMAB-LDRM
     Indication: Dermatitis atopic
     Dosage: DOSAGE: RECEIVED INITIAL DOSE THEN 1 MAINTENANCE DOSE, SOMETIMES IN THE LAST TWO MONTHS

REACTIONS (2)
  - Eye pain [Unknown]
  - Eye swelling [Unknown]
